FAERS Safety Report 18386813 (Version 1)
Quarter: 2020Q4

REPORT INFORMATION
  Report Type: Spontaneous
  Country: US (occurrence: US)
  Receive Date: 20201014
  Receipt Date: 20201014
  Transmission Date: 20210114
  Serious: Yes (Hospitalization)
  Sender: FDA-Public Use
  Company Number: None

PATIENT
  Age: 76 Year
  Sex: Female
  Weight: 66.4 kg

DRUGS (10)
  1. TRAZODONE [Concomitant]
     Active Substance: TRAZODONE HYDROCHLORIDE
  2. CYCLOPHOSPHAMIDE (26271) [Suspect]
     Active Substance: CYCLOPHOSPHAMIDE
  3. ETOPOSIDE (VP- 16)368 MG [Suspect]
     Active Substance: ETOPOSIDE
  4. DOXORUBICIN HYDROCHLORIDE 73.6 MG [Suspect]
     Active Substance: DOXORUBICIN HYDROCHLORIDE
  5. VINCRISTIN (VINCRISTINE SULFATE) [Suspect]
     Active Substance: VINCRISTINE SULFATE
  6. FAMOTIDINE. [Concomitant]
     Active Substance: FAMOTIDINE
  7. FLUCONAZOLE. [Concomitant]
     Active Substance: FLUCONAZOLE
  8. RITUXIMAB (MOAB C2B8 ANTI CD20, CHIMERIC) 700MG [Suspect]
     Active Substance: RITUXIMAB
  9. PREDNISONE 1000MG [Suspect]
     Active Substance: PREDNISONE
  10. LEXAPRO [Concomitant]
     Active Substance: ESCITALOPRAM OXALATE

REACTIONS (6)
  - Electrocardiogram QT prolonged [None]
  - Electrocardiogram T wave abnormal [None]
  - Hip fracture [None]
  - Bundle branch block right [None]
  - Fall [None]
  - Thrombocytopenia [None]

NARRATIVE: CASE EVENT DATE: 20201012
